FAERS Safety Report 13574914 (Version 1)
Quarter: 2017Q2

REPORT INFORMATION
  Report Type: Spontaneous
  Country: US (occurrence: US)
  Receive Date: 20170523
  Receipt Date: 20170523
  Transmission Date: 20170830
  Serious: No
  Sender: FDA-Public Use
  Company Number: US-009507513-1705USA006591

PATIENT
  Age: 71 Year
  Sex: Female

DRUGS (1)
  1. BELSOMRA [Suspect]
     Active Substance: SUVOREXANT
     Indication: INSOMNIA
     Dosage: DOSE/FREQUENCY: ONE TABLET NIGHTLY
     Route: 048
     Dates: start: 20170504

REACTIONS (4)
  - Middle insomnia [Unknown]
  - Somnolence [Recovered/Resolved]
  - Poor quality sleep [Unknown]
  - Abnormal dreams [Not Recovered/Not Resolved]

NARRATIVE: CASE EVENT DATE: 20170504
